FAERS Safety Report 21891800 (Version 5)
Quarter: 2023Q1

REPORT INFORMATION
  Report Type: Report from Study
  Country: US (occurrence: US)
  Receive Date: 20230120
  Receipt Date: 20230216
  Transmission Date: 20230417
  Serious: Yes (Death)
  Sender: FDA-Public Use
  Company Number: US-ABBVIE-4277463

PATIENT
  Age: 68 Year
  Sex: Male

DRUGS (1)
  1. CREON [Suspect]
     Active Substance: PANCRELIPASE AMYLASE\PANCRELIPASE LIPASE\PANCRELIPASE PROTEASE
     Indication: Product used for unknown indication
     Dosage: 36,000 UNIT, TAKE TWO CAPSULES BY MOUTH WITH MEALS TAKE CAPSULE BY MOUTH WITH SNACKS
     Route: 048
     Dates: start: 202212

REACTIONS (1)
  - Death [Fatal]

NARRATIVE: CASE EVENT DATE: 20230107
